FAERS Safety Report 24600336 (Version 2)
Quarter: 2025Q3

REPORT INFORMATION
  Report Type: Spontaneous
  Country: US (occurrence: US)
  Receive Date: 20241110
  Receipt Date: 20250722
  Transmission Date: 20251020
  Serious: No
  Sender: SANOFI AVENTIS
  Company Number: US-SA-2024SA322222

PATIENT
  Sex: Male
  Weight: 87.982 kg

DRUGS (2)
  1. DUPIXENT [Suspect]
     Active Substance: DUPILUMAB
     Indication: Dermatitis atopic
     Dosage: 300 MG, QOW
  2. BENZONATATE [Concomitant]
     Active Substance: BENZONATATE

REACTIONS (1)
  - Malaise [Unknown]
